FAERS Safety Report 9366157 (Version 1)
Quarter: 2013Q2

REPORT INFORMATION
  Report Type: Spontaneous
  Country: BR (occurrence: BR)
  Receive Date: 20130625
  Receipt Date: 20130625
  Transmission Date: 20140414
  Serious: Yes (Hospitalization)
  Sender: FDA-Public Use
  Company Number: BR-ASTRAZENECA-2013SE47567

PATIENT
  Age: 3316 Week
  Sex: Male
  Weight: 80 kg

DRUGS (5)
  1. OMEPRAZOLE [Suspect]
     Indication: GASTRITIS PROPHYLAXIS
     Route: 048
  2. CRESTOR [Suspect]
     Indication: BLOOD CHOLESTEROL INCREASED
     Route: 048
     Dates: start: 2006
  3. CRESTOR [Suspect]
     Indication: MYOCARDIAL INFARCTION
     Route: 048
     Dates: start: 2006
  4. ASPIRIN [Concomitant]
  5. CONCOR [Concomitant]

REACTIONS (1)
  - Myocardial infarction [Recovered/Resolved]
